FAERS Safety Report 16543944 (Version 1)
Quarter: 2019Q3

REPORT INFORMATION
  Report Type: Spontaneous
  Country: AR (occurrence: AR)
  Receive Date: 20190709
  Receipt Date: 20190709
  Transmission Date: 20191004
  Serious: Yes (Hospitalization, Other)
  Sender: FDA-Public Use
  Company Number: AR-PFIZER INC-2019273182

PATIENT
  Age: 46 Year
  Sex: Female

DRUGS (1)
  1. SUTENT [Suspect]
     Active Substance: SUNITINIB MALATE
     Indication: METASTATIC RENAL CELL CARCINOMA
     Dosage: UNK
     Dates: start: 20180925, end: 201905

REACTIONS (4)
  - Cholelithiasis [Recovering/Resolving]
  - Gallbladder disorder [Recovering/Resolving]
  - Device related infection [Recovering/Resolving]
  - Device occlusion [Recovering/Resolving]

NARRATIVE: CASE EVENT DATE: 201905
